FAERS Safety Report 22204266 (Version 4)
Quarter: 2023Q4

REPORT INFORMATION
  Report Type: Report from Study
  Country: MY (occurrence: MY)
  Receive Date: 20230412
  Receipt Date: 20231218
  Transmission Date: 20240109
  Serious: Yes (Hospitalization, Other)
  Sender: FDA-Public Use
  Company Number: MY-002147023-NVSC2023MY076849

PATIENT

DRUGS (4)
  1. RUXOLITINIB [Suspect]
     Active Substance: RUXOLITINIB
     Indication: Myelofibrosis
     Dosage: 15 MG, BID
     Route: 048
     Dates: start: 20230222, end: 20230314
  2. RUXOLITINIB [Suspect]
     Active Substance: RUXOLITINIB
     Dosage: UNK (CYCLE NUMBER 2, DAY NUMBER 4 (PENDING CONFIRMATION))
     Route: 065
     Dates: start: 20230313, end: 20230314
  3. RUXOLITINIB [Suspect]
     Active Substance: RUXOLITINIB
     Dosage: 15 MG, BID
     Route: 048
     Dates: start: 20230329
  4. CHLORAMPHENICOL [CHLORAMPHENICOL SODIUM SUCCINATE] [Concomitant]
     Indication: Product used for unknown indication
     Dosage: UNK
     Route: 065
     Dates: start: 20230307, end: 20230329

REACTIONS (6)
  - C-reactive protein increased [Unknown]
  - Bilirubin conjugated increased [Unknown]
  - Haemoglobin decreased [Unknown]
  - Herpes zoster [Recovered/Resolved]
  - Abscess neck [Recovered/Resolved]
  - Pyrexia [Recovered/Resolved]

NARRATIVE: CASE EVENT DATE: 20230308
